FAERS Safety Report 6056363-7 (Version None)
Quarter: 2009Q1

REPORT INFORMATION
  Report Type: 
  Country: None (occurrence: None)
  Receive Date: 20090129
  Receipt Date: 20090122
  Transmission Date: 20090719
  Serious: Yes (Hospitalization)
  Sender: FDA-Public Use
  Company Number: IT-AVENTIS-200821621GDDC

PATIENT
  Age: 73 Year
  Sex: Male
  Weight: 73 kg

DRUGS (6)
  1. AFLIBERCEPT [Suspect]
     Indication: NON-SMALL CELL LUNG CANCER
     Route: 042
     Dates: start: 20081121, end: 20081121
  2. DOCETAXEL [Suspect]
     Indication: NON-SMALL CELL LUNG CANCER
     Route: 042
     Dates: start: 20081121, end: 20081121
  3. NEO-LOTAN [Concomitant]
     Dates: start: 19940101
  4. ASPIRIN [Concomitant]
     Dates: start: 19940101
  5. TAVANIC [Concomitant]
     Dates: start: 20080923, end: 20080928
  6. DELTACORTENE [Concomitant]
     Dates: start: 20080923, end: 20080930

REACTIONS (1)
  - PNEUMOTHORAX [None]
